FAERS Safety Report 8318991-5 (Version None)
Quarter: 2012Q2

REPORT INFORMATION
  Report Type: 
  Country: None (occurrence: None)
  Receive Date: 20120427
  Receipt Date: 20120419
  Transmission Date: 20120825
  Serious: Yes (Hospitalization)
  Sender: FDA-Public Use
  Company Number: BE-ABBOTT-12P-013-0927586-03

PATIENT
  Sex: Female

DRUGS (13)
  1. PANTOPRAZOLE [Concomitant]
     Indication: ABDOMINAL PAIN UPPER
     Dates: start: 20090401, end: 20090901
  2. LORAZEPAM [Concomitant]
     Indication: INSOMNIA
     Dates: start: 20110101
  3. PANTOPRAZOLE [Concomitant]
     Dates: start: 20120208, end: 20120218
  4. FELDENE [Concomitant]
     Indication: ARTHRALGIA
     Dates: start: 20090101, end: 20090101
  5. EFFEXOR [Concomitant]
     Indication: INSOMNIA
     Dates: start: 20090703, end: 20090708
  6. CETIRIZINE [Concomitant]
     Indication: HYPERSENSITIVITY
     Dates: start: 20110101
  7. ZOLPIDEM [Concomitant]
     Indication: INSOMNIA
     Dates: start: 20110101
  8. OMEPRAZOLE [Concomitant]
     Indication: ABDOMINAL PAIN UPPER
     Dates: start: 20080501, end: 20090101
  9. FLAGYL [Concomitant]
     Indication: INFECTION
     Dates: start: 20120204
  10. HUMIRA [Suspect]
     Indication: CROHN'S DISEASE
     Route: 058
     Dates: end: 20090701
  11. MOTILIUM [Concomitant]
     Indication: DIARRHOEA
     Dates: start: 20090301
  12. EFFEXOR [Concomitant]
     Dates: start: 20090801
  13. PANTOPRAZOLE [Concomitant]
     Dates: start: 20091201, end: 20120207

REACTIONS (1)
  - CROHN'S DISEASE [None]
